FAERS Safety Report 6888786-8 (Version None)
Quarter: 2010Q3

REPORT INFORMATION
  Report Type: 
  Country: None (occurrence: None)
  Receive Date: 20100730
  Receipt Date: 20071031
  Transmission Date: 20110219
  Serious: No
  Sender: FDA-Public Use
  Company Number: US-PFIZER INC-2007092367

PATIENT
  Age: 51 Year
  Sex: Female

DRUGS (4)
  1. LIPITOR [Suspect]
  2. ZOCOR [Suspect]
  3. ZETIA [Suspect]
  4. CRESTOR [Suspect]

REACTIONS (1)
  - RASH PRURITIC [None]
